FAERS Safety Report 23004373 (Version 4)
Quarter: 2023Q4

REPORT INFORMATION
  Report Type: Report from Study
  Country: US (occurrence: US)
  Receive Date: 20230928
  Receipt Date: 20231128
  Transmission Date: 20240109
  Serious: Yes (Other)
  Sender: FDA-Public Use
  Company Number: US-SA-SAC20230926000043

PATIENT
  Age: 8 Year
  Sex: Male

DRUGS (2)
  1. EFANESOCTOCOG ALFA [Suspect]
     Active Substance: EFANESOCTOCOG ALFA
     Indication: Factor VIII deficiency
     Dosage: DOSE: 927 TO 1030 UNITS, QW
     Route: 042
     Dates: start: 2023
  2. EFANESOCTOCOG ALFA [Suspect]
     Active Substance: EFANESOCTOCOG ALFA
     Dosage: 1030 (UNITS NOT REPORTED), Q4D
     Route: 042
     Dates: start: 20230821

REACTIONS (4)
  - Muscle haemorrhage [Unknown]
  - Haemarthrosis [Recovering/Resolving]
  - Haemorrhage [Recovering/Resolving]
  - Hypermetabolism [Unknown]

NARRATIVE: CASE EVENT DATE: 20230101
